FAERS Safety Report 19490664 (Version 1)
Quarter: 2021Q3

REPORT INFORMATION
  Report Type: Spontaneous
  Country: IT (occurrence: IT)
  Receive Date: 20210705
  Receipt Date: 20210705
  Transmission Date: 20211014
  Serious: Yes (Death, Hospitalization, Other)
  Sender: FDA-Public Use
  Company Number: IT-VISTAPHARM, INC.-VER202106-001504

PATIENT
  Age: 18 Year
  Sex: Male

DRUGS (19)
  1. PROPOFOL. [Concomitant]
     Active Substance: PROPOFOL
     Indication: PSYCHOMOTOR HYPERACTIVITY
     Dosage: UNKNOWN
  2. DELORAZEPAM [Concomitant]
     Active Substance: DELORAZEPAM
     Indication: AGGRESSION
  3. ETHYLIDENE?1,5?DIMETHYL?3,3?DIPHENYLPYRROLIDINE [Concomitant]
     Indication: PRODUCT USED FOR UNKNOWN INDICATION
     Dosage: UNKNOWN
  4. MIRTAZAPINE. [Suspect]
     Active Substance: MIRTAZAPINE
     Indication: PRODUCT USED FOR UNKNOWN INDICATION
     Dosage: 30 MG
  5. DIAZEPAM. [Concomitant]
     Active Substance: DIAZEPAM
     Indication: PSYCHOMOTOR HYPERACTIVITY
     Dosage: UNKNOWN
  6. ALCOHOL. [Concomitant]
     Active Substance: ALCOHOL
     Indication: PRODUCT USED FOR UNKNOWN INDICATION
     Dosage: UNKNOWN
  7. CLOTIAPINE [Concomitant]
     Active Substance: CLOTHIAPINE
     Indication: PSYCHOMOTOR HYPERACTIVITY
     Dosage: UNKNOWN
  8. HALOPERIDOL. [Concomitant]
     Active Substance: HALOPERIDOL
     Indication: AGGRESSION
  9. DELORAZEPAM [Concomitant]
     Active Substance: DELORAZEPAM
     Indication: PSYCHOMOTOR HYPERACTIVITY
     Dosage: UNKNOWN
  10. FLURAZEPAM [Concomitant]
     Active Substance: FLURAZEPAM HYDROCHLORIDE
     Indication: PRODUCT USED FOR UNKNOWN INDICATION
     Dosage: UNKNOWN
  11. CLOTIAPINE [Concomitant]
     Active Substance: CLOTHIAPINE
     Indication: AGGRESSION
  12. PROPOFOL. [Concomitant]
     Active Substance: PROPOFOL
     Indication: AGGRESSION
  13. PROMAZINE [Concomitant]
     Active Substance: PROMAZINE
     Indication: AGGRESSION
  14. PROMAZINE [Concomitant]
     Active Substance: PROMAZINE
     Indication: PSYCHOMOTOR HYPERACTIVITY
     Dosage: UNKNOWN
  15. HALOPERIDOL. [Concomitant]
     Active Substance: HALOPERIDOL
     Indication: PSYCHOMOTOR HYPERACTIVITY
     Dosage: UNKNOWN
  16. QUETIAPINE. [Concomitant]
     Active Substance: QUETIAPINE
     Indication: AGGRESSION
  17. METHADONE [Suspect]
     Active Substance: METHADONE HYDROCHLORIDE
     Indication: PRODUCT USED FOR UNKNOWN INDICATION
     Dosage: 112 ML VIAL OF 0.5%
  18. DIAZEPAM. [Concomitant]
     Active Substance: DIAZEPAM
     Indication: AGGRESSION
  19. QUETIAPINE. [Concomitant]
     Active Substance: QUETIAPINE
     Indication: PSYCHOMOTOR HYPERACTIVITY
     Dosage: UNKNOWN

REACTIONS (11)
  - Brain injury [Unknown]
  - Respiratory depression [Unknown]
  - Drug interaction [Unknown]
  - Loss of consciousness [Unknown]
  - Brain oedema [Unknown]
  - Toxicity to various agents [Fatal]
  - Hepatomegaly [Unknown]
  - Petechiae [Unknown]
  - Pulmonary oedema [Unknown]
  - Vomiting [Unknown]
  - Intentional overdose [Unknown]
